FAERS Safety Report 4317615-1 (Version None)
Quarter: 2004Q1

REPORT INFORMATION
  Report Type: 
  Country: None (occurrence: None)
  Receive Date: 20040315
  Receipt Date: 20040309
  Transmission Date: 20041129
  Serious: Yes (Hospitalization)
  Sender: FDA-Public Use
  Company Number: 200413037GDDC

PATIENT
  Age: 87 Year
  Sex: Female

DRUGS (6)
  1. NATRILIX [Suspect]
     Indication: ESSENTIAL HYPERTENSION
     Dosage: DOSE: UNK
     Dates: end: 20030901
  2. ISOSORBIDE MONONITRATE [Concomitant]
  3. SOTALOL HCL [Concomitant]
  4. ENALAPRIL MALEATE [Concomitant]
  5. ASASANTIN [Concomitant]
  6. GLYCERYL TRINITRATE [Concomitant]

REACTIONS (3)
  - CONFUSIONAL STATE [None]
  - DISORIENTATION [None]
  - HYPONATRAEMIA [None]
